FAERS Safety Report 8659779 (Version 5)
Quarter: 2012Q4

REPORT INFORMATION
  Report Type: 
  Country: JP (occurrence: JP)
  Receive Date: 20120711
  Receipt Date: 20121005
  Transmission Date: 20130627
  Serious: Yes (Hospitalization)
  Sender: FDA-Public Use
  Company Number: JP-JNJFOC-20120703313

PATIENT
  Age: 41 Year
  Sex: Female
  Weight: 64 kg

DRUGS (3)
  1. DOXORUBICIN HYDROCHLORIDE(DOXIL) [Suspect]
     Indication: BREAST CANCER STAGE I
     Dosage: every 3 weeks; total of 4 cycles
     Route: 042
     Dates: start: 200802
  2. LIPOSOMAL DOXORUBICIN [Suspect]
     Indication: BREAST CANCER STAGE I
     Dosage: every 3 weeks; total of 4 cycles
     Route: 042
     Dates: start: 200802
  3. TRASTUZUMAB [Suspect]
     Indication: BREAST CANCER STAGE I
     Dosage: to be administered a total of 18 times
     Route: 042
     Dates: start: 200805

REACTIONS (2)
  - Cardiac failure acute [Recovered/Resolved]
  - Off label use [Unknown]
